FAERS Safety Report 25775295 (Version 1)
Quarter: 2025Q3

REPORT INFORMATION
  Report Type: Report from Study
  Country: US (occurrence: US)
  Receive Date: 20250909
  Receipt Date: 20250909
  Transmission Date: 20251020
  Serious: No
  Sender: BIOGEN
  Company Number: US-BIOGEN-2025BI01323211

PATIENT
  Age: 37 Year
  Sex: Female

DRUGS (1)
  1. ZURZUVAE [Suspect]
     Active Substance: ZURANOLONE
     Indication: Perinatal depression
     Dosage: TAKE 2 CAPSULES (50MG) ONCE DAILY FOR 14 DAYS IN THE EVENING WITH FAT-CONTAINING FOOD
     Route: 050

REACTIONS (2)
  - Autoscopy [Unknown]
  - Somnolence [Unknown]

NARRATIVE: CASE EVENT DATE: 20250508
